FAERS Safety Report 6401008-7 (Version None)
Quarter: 2009Q4

REPORT INFORMATION
  Report Type: 
  Country: None (occurrence: None)
  Receive Date: 20091015
  Receipt Date: 20070308
  Transmission Date: 20100525
  Serious: Yes (Disabling)
  Sender: FDA-Public Use
  Company Number: US-ASTRAZENECA-2006UW08322

PATIENT
  Sex: Female
  Weight: 102.1 kg

DRUGS (12)
  1. SEROQUEL [Suspect]
     Route: 048
     Dates: start: 20010814
  2. NEURONTIN [Concomitant]
     Dosage: 300 MG - 600 MG
     Route: 048
     Dates: start: 20020122
  3. ACYCLOVIR [Concomitant]
     Route: 048
     Dates: start: 20020205
  4. DYAZIDE [Concomitant]
     Route: 048
     Dates: start: 19970605
  5. PREMPRO [Concomitant]
     Dosage: 0.625 MG - 5 MG
     Route: 048
     Dates: start: 19970605
  6. AMARYL [Concomitant]
     Route: 048
     Dates: start: 20020129
  7. EFFEXOR [Concomitant]
     Route: 048
     Dates: start: 20020614
  8. REMERON [Concomitant]
     Dosage: 15 MG - 50 MG
     Route: 048
     Dates: start: 20011029
  9. XANAX [Concomitant]
     Route: 048
     Dates: start: 19990614
  10. LORCET-HD [Concomitant]
     Dosage: AS PER NEEDED
     Route: 048
     Dates: start: 20020614
  11. ZOLOFT [Concomitant]
     Route: 048
     Dates: start: 20020409
  12. CYMBALTA [Concomitant]
     Route: 048
     Dates: start: 20050309

REACTIONS (1)
  - ILL-DEFINED DISORDER [None]
